FAERS Safety Report 6718736-6 (Version None)
Quarter: 2010Q2

REPORT INFORMATION
  Report Type: 
  Country: None (occurrence: None)
  Receive Date: 20100511
  Receipt Date: 20100430
  Transmission Date: 20101027
  Serious: Yes (Other)
  Sender: FDA-Public Use
  Company Number: US-JNJFOC-20100500247

PATIENT
  Sex: Female

DRUGS (3)
  1. REMICADE [Suspect]
     Indication: RHEUMATOID ARTHRITIS
     Route: 042
  2. REMICADE [Suspect]
     Dosage: START DATE ABOUT 7 YEARS AGO, DOSE 5 VIALS
     Route: 042
  3. REMICADE [Suspect]
     Route: 042

REACTIONS (3)
  - EAR PAIN [None]
  - SURGERY [None]
  - TINNITUS [None]
